FAERS Safety Report 19280200 (Version 1)
Quarter: 2021Q2

REPORT INFORMATION
  Report Type: Spontaneous
  Country: US (occurrence: US)
  Receive Date: 20210520
  Receipt Date: 20210520
  Transmission Date: 20210717
  Serious: No
  Sender: FDA-Public Use
  Company Number: US-VIIV HEALTHCARE LIMITED-US2021102756

PATIENT
  Sex: Male

DRUGS (1)
  1. DOVATO [Suspect]
     Active Substance: DOLUTEGRAVIR SODIUM\LAMIVUDINE
     Indication: PRODUCT USED FOR UNKNOWN INDICATION
     Dosage: 1 DF, QD  50/300 MG TABLET
     Route: 048
     Dates: start: 201906, end: 2019

REACTIONS (5)
  - Cognitive disorder [Recovering/Resolving]
  - Viral mutation identified [Unknown]
  - Viral load increased [Unknown]
  - Memory impairment [Recovering/Resolving]
  - Loss of personal independence in daily activities [Recovering/Resolving]
